FAERS Safety Report 14181770 (Version 1)
Quarter: 2017Q4

REPORT INFORMATION
  Report Type: Spontaneous
  Country: US (occurrence: US)
  Receive Date: 20171113
  Receipt Date: 20171113
  Transmission Date: 20180321
  Serious: No
  Sender: FDA-Public Use
  Company Number: US-ELI_LILLY_AND_COMPANY-US201711003347

PATIENT
  Sex: Male

DRUGS (2)
  1. HUMALOG [Suspect]
     Active Substance: INSULIN LISPRO
     Indication: PRODUCT USED FOR UNKNOWN INDICATION
     Dosage: 3 IU, UNKNOWN
     Route: 065
     Dates: start: 20171106
  2. PREDNISONE. [Concomitant]
     Active Substance: PREDNISONE
     Indication: LUNG NEOPLASM MALIGNANT

REACTIONS (2)
  - Blood glucose increased [Unknown]
  - Limb injury [Unknown]
